FAERS Safety Report 8584940-8 (Version None)
Quarter: 2012Q3

REPORT INFORMATION
  Report Type: 
  Country: None (occurrence: None)
  Receive Date: 20120810
  Receipt Date: 20120806
  Transmission Date: 20120928
  Serious: Yes (Other)
  Sender: FDA-Public Use
  Company Number: US-PFIZER INC-2012191208

PATIENT
  Sex: Female

DRUGS (3)
  1. LYRICA [Suspect]
     Indication: PAIN
     Dosage: UNK
  2. MEBARAL [Suspect]
     Dosage: UNK
  3. OXCARBAZEPINE [Suspect]
     Dosage: UNK

REACTIONS (11)
  - VOMITING [None]
  - CONSTIPATION [None]
  - BREAST PAIN [None]
  - DYSPNOEA [None]
  - DIARRHOEA [None]
  - NEOPLASM MALIGNANT [None]
  - BLOOD SODIUM ABNORMAL [None]
  - DRUG INEFFECTIVE [None]
  - CIRCUMSTANCE OR INFORMATION CAPABLE OF LEADING TO MEDICATION ERROR [None]
  - BREAST TENDERNESS [None]
  - PAIN [None]
